FAERS Safety Report 6032155-X (Version None)
Quarter: 2009Q1

REPORT INFORMATION
  Report Type: 
  Country: None (occurrence: None)
  Receive Date: 20090107
  Receipt Date: 20081223
  Transmission Date: 20090719
  Serious: Yes (Hospitalization)
  Sender: FDA-Public Use
  Company Number: 2008003343

PATIENT
  Age: 71 Year
  Sex: Male

DRUGS (6)
  1. ERLOTINIB (ERLOTINIB) (TABLET) (ERLOTINIB) [Suspect]
     Indication: NON-SMALL CELL LUNG CANCER
     Dosage: 150 MG, QD, ORAL,  150 MG, QD, ORAL
     Route: 048
     Dates: start: 20070101, end: 20071009
  2. ERLOTINIB (ERLOTINIB) (TABLET) (ERLOTINIB) [Suspect]
     Indication: NON-SMALL CELL LUNG CANCER
     Dosage: 150 MG, QD, ORAL,  150 MG, QD, ORAL
     Route: 048
     Dates: start: 20080401, end: 20080502
  3. GEMCITABINE [Suspect]
     Indication: NON-SMALL CELL LUNG CANCER
     Dates: start: 20071009, end: 20071112
  4. CARBOPLATIN [Concomitant]
  5. ALIMTA [Concomitant]
  6. TAXOL [Concomitant]

REACTIONS (2)
  - NO REACTION ON PREVIOUS EXPOSURE TO DRUG [None]
  - PULMONARY EMBOLISM [None]
